FAERS Safety Report 12417053 (Version 9)
Quarter: 2018Q1

REPORT INFORMATION
  Report Type: Spontaneous
  Country: US (occurrence: US)
  Receive Date: 20160530
  Receipt Date: 20180316
  Transmission Date: 20180508
  Serious: No
  Sender: FDA-Public Use
  Company Number: US-PFIZER INC-2016232927

PATIENT
  Age: 73 Year
  Sex: Female
  Weight: 40 kg

DRUGS (16)
  1. ALENDRONATE [Concomitant]
     Active Substance: ALENDRONATE SODIUM
     Dosage: UNK
  2. ASA [Concomitant]
     Active Substance: ASPIRIN
     Dosage: UNK
  3. PRAVACHOL [Concomitant]
     Active Substance: PRAVASTATIN SODIUM
     Indication: HEART TRANSPLANT
     Dosage: 20 MG, 1X/DAY
     Route: 048
  4. RAPAMUNE [Suspect]
     Active Substance: SIROLIMUS
     Dosage: 4 MG, DAILY
     Route: 048
     Dates: start: 20161130
  5. RAPAMUNE [Suspect]
     Active Substance: SIROLIMUS
     Dosage: 4 MG, DAILY
     Route: 048
     Dates: start: 20170417
  6. RAPAMUNE [Suspect]
     Active Substance: SIROLIMUS
     Dosage: 1 DF, CYCLIC (4 MG ONE DAY AND 5 MG NEXT DAY AND ALTERNATE LIKE THAT BACK AND FORTH)
     Route: 048
     Dates: start: 20170921
  7. RAPAMUNE [Suspect]
     Active Substance: SIROLIMUS
     Dosage: 6 MG, DAILY
  8. AZATHIOPRINE. [Concomitant]
     Active Substance: AZATHIOPRINE
     Indication: HEART TRANSPLANT REJECTION
     Dosage: 1 DF, DAILY
     Route: 048
  9. CELEXA [Concomitant]
     Active Substance: CITALOPRAM HYDROBROMIDE
     Indication: MENTAL DISABILITY
     Dosage: 20 MG, 1X/DAY
     Route: 048
  10. CITALOPRAM [Concomitant]
     Active Substance: CITALOPRAM HYDROBROMIDE
     Dosage: UNK
  11. PRAVASTATIN. [Concomitant]
     Active Substance: PRAVASTATIN
     Dosage: UNK
  12. CALCIUM PLUS VITAMIN D3 [Concomitant]
     Indication: OSTEOPENIA
     Dosage: 3 DF, 1X/DAY (600 MG/800 IU)
  13. BACTRIM [Concomitant]
     Active Substance: SULFAMETHOXAZOLE\TRIMETHOPRIM
     Indication: HEART TRANSPLANT
     Dosage: 1 DF, CYCLIC (400-80MG PER TABLET EVERYMONDAY, WEDNESDAY, AND FRIDAY)
  14. RAPAMUNE [Suspect]
     Active Substance: SIROLIMUS
     Indication: HEART TRANSPLANT REJECTION
     Dosage: 4 MG, 1X/DAY
     Route: 048
     Dates: start: 201601
  15. VITAMIN B12 [Concomitant]
     Active Substance: CYANOCOBALAMIN
     Dosage: UNK
  16. ASPIRIN. [Concomitant]
     Active Substance: ASPIRIN
     Indication: HEART TRANSPLANT
     Dosage: 80 MG, 1X/DAY
     Route: 048

REACTIONS (4)
  - Product use in unapproved indication [Unknown]
  - Drug level fluctuating [Not Recovered/Not Resolved]
  - Red blood cell count decreased [Not Recovered/Not Resolved]
  - White blood cell count decreased [Not Recovered/Not Resolved]

NARRATIVE: CASE EVENT DATE: 201601
